FAERS Safety Report 8205656-3 (Version None)
Quarter: 2012Q1

REPORT INFORMATION
  Report Type: 
  Country: None (occurrence: None)
  Receive Date: 20120313
  Receipt Date: 20120306
  Transmission Date: 20120608
  Serious: Yes (Other)
  Sender: FDA-Public Use
  Company Number: US-JNJFOC-20120304216

PATIENT

DRUGS (49)
  1. CYCLOPHOSPHAMIDE [Suspect]
     Indication: NEUROBLASTOMA
     Route: 042
  2. TOPOTECAN [Suspect]
     Indication: NEUROBLASTOMA
     Dosage: 0.04 MG/KG/DAY
     Route: 042
  3. ETOPOSIDE [Suspect]
     Dosage: 6.67 MG/KG/DAY
     Route: 042
  4. VINCRISTINE [Suspect]
     Dosage: 0.22 MG/KG/DAY
     Route: 042
  5. CYCLOPHOSPHAMIDE [Suspect]
     Dosage: 70 MG/KG/DAY
     Route: 065
  6. DOXORUBICIN HCL [Suspect]
     Route: 042
  7. CYCLOPHOSPHAMIDE [Suspect]
     Dosage: 13.3 MG/KG/DAY
     Route: 042
  8. CYCLOPHOSPHAMIDE [Suspect]
     Route: 042
  9. ETOPOSIDE [Suspect]
     Dosage: 6.67 MG/KG/DAY
     Route: 042
  10. VINCRISTINE [Suspect]
     Indication: NEUROBLASTOMA
     Dosage: 0.22 MG/KG/DAY
     Route: 042
  11. VINCRISTINE [Suspect]
     Dosage: 0.22 MG/KG/DAY
     Route: 042
  12. CYCLOPHOSPHAMIDE [Suspect]
     Dosage: 70 MG/KG/DAY
     Route: 065
  13. CYCLOPHOSPHAMIDE [Suspect]
     Route: 042
  14. TOPOTECAN [Suspect]
     Dosage: 0.04 MG/KG/DAY
     Route: 042
  15. CISPLATIN [Suspect]
     Dosage: 1.66 MG/KG/DAY
     Route: 042
  16. MESNA [Suspect]
     Dosage: 14 MG/KG/DAY
     Route: 042
  17. CYCLOPHOSPHAMIDE [Suspect]
     Dosage: 70 MG/KG/DAY
     Route: 065
  18. CYCLOPHOSPHAMIDE [Suspect]
     Route: 042
  19. TOPOTECAN [Suspect]
     Dosage: 0.04 MG/KG/DAY
     Route: 042
  20. CISPLATIN [Suspect]
     Dosage: 1.66 MG/KG/DAY
     Route: 042
  21. VINCRISTINE [Suspect]
     Dosage: 0.22 MG/KG/DAY
     Route: 042
  22. VINCRISTINE [Suspect]
     Dosage: 0.22 MG/KG/DAY
     Route: 042
  23. NEUPOGEN [Suspect]
     Indication: NEUTROPHIL COUNT
     Route: 065
  24. CYCLOPHOSPHAMIDE [Suspect]
     Dosage: 70 MG/KG/DAY
     Route: 065
  25. TOPOTECAN [Suspect]
     Dosage: 0.04 MG/KG/DAY
     Route: 042
  26. MESNA [Suspect]
     Dosage: 14 MG/KG/DAY
     Route: 042
  27. MESNA [Suspect]
     Dosage: 14 MG/KG/DAY
     Route: 042
  28. MESNA [Suspect]
     Dosage: 14 MG/KG/DAY
     Route: 042
  29. DOXORUBICIN HCL [Suspect]
     Indication: NEUROBLASTOMA
     Dosage: 0.83 MG/KG/DAY
     Route: 042
  30. DOXORUBICIN HCL [Suspect]
     Route: 042
  31. TOPOTECAN [Suspect]
     Dosage: 0.04 MG/KG/DAY
     Route: 042
  32. CISPLATIN [Suspect]
     Indication: NEUROBLASTOMA
     Dosage: 1.66 MG/KG/DAY
     Route: 042
  33. CISPLATIN [Suspect]
     Dosage: 1.66 MG/KG/DAY
     Route: 042
  34. ETOPOSIDE [Suspect]
     Dosage: 6.67 MG/KG/DAY
     Route: 042
  35. CYCLOPHOSPHAMIDE [Suspect]
     Dosage: 70 MG/KG/DAY
     Route: 065
  36. DOXORUBICIN HCL [Suspect]
     Route: 042
  37. CYCLOPHOSPHAMIDE [Suspect]
     Route: 042
  38. CISPLATIN [Suspect]
     Route: 042
  39. CISPLATIN [Suspect]
     Route: 042
  40. ETOPOSIDE [Suspect]
     Indication: NEUROBLASTOMA
     Dosage: 6.67 MG/KG/DAY
     Route: 042
  41. ETOPOSIDE [Suspect]
     Dosage: 6.67 MG/KG/DAY
     Route: 042
  42. ETOPOSIDE [Suspect]
     Dosage: 6.67 MG/KG/DAY
     Route: 042
  43. MESNA [Suspect]
     Indication: NEUROBLASTOMA
     Dosage: 14 MG/KG/DAY
     Route: 042
  44. MESNA [Suspect]
     Dosage: 14 MG/KG/DAY
     Route: 042
  45. VINCRISTINE [Suspect]
     Dosage: 0.22 MG/KG/DAY
     Route: 042
  46. CYCLOPHOSPHAMIDE [Suspect]
     Dosage: 70 MG/KG/DAY
     Route: 065
  47. DOXORUBICIN HCL [Suspect]
     Route: 042
  48. DOXORUBICIN HCL [Suspect]
     Route: 042
  49. TOPOTECAN [Suspect]
     Dosage: 0.04 MG/KG/DAY
     Route: 042

REACTIONS (10)
  - COLITIS [None]
  - GRANULOCYTES ABNORMAL [None]
  - FEBRILE NEUTROPENIA [None]
  - STOMATITIS [None]
  - PLATELET DISORDER [None]
  - HAEMOGLOBIN ABNORMAL [None]
  - INFECTION [None]
  - MUCOSAL INFLAMMATION [None]
  - ENTERITIS [None]
  - DIARRHOEA [None]
